FAERS Safety Report 19904948 (Version 1)
Quarter: 2021Q3

REPORT INFORMATION
  Report Type: Spontaneous
  Country: US (occurrence: US)
  Receive Date: 20210930
  Receipt Date: 20210930
  Transmission Date: 20211014
  Serious: No
  Sender: FDA-Public Use
  Company Number: US-MERZ PHARMACEUTICALS GMBH-21-03364

PATIENT
  Sex: Female

DRUGS (3)
  1. XEOMIN [Suspect]
     Active Substance: INCOBOTULINUMTOXINA
     Indication: SKIN COSMETIC PROCEDURE
  2. XEOMIN [Suspect]
     Active Substance: INCOBOTULINUMTOXINA
     Indication: SKIN WRINKLING
     Dates: start: 20210904, end: 20210904
  3. BOTOX [Concomitant]
     Active Substance: ONABOTULINUMTOXINA

REACTIONS (1)
  - Therapeutic response decreased [Unknown]

NARRATIVE: CASE EVENT DATE: 202109
